FAERS Safety Report 4673384-7 (Version None)
Quarter: 2005Q2

REPORT INFORMATION
  Report Type: 
  Country: None (occurrence: None)
  Receive Date: 20050525
  Receipt Date: 20040720
  Transmission Date: 20051028
  Serious: Yes (Other)
  Sender: FDA-Public Use
  Company Number: PHEH2004US07786

PATIENT
  Age: 27 Year
  Sex: Female
  Weight: 73 kg

DRUGS (3)
  1. TEGRETOL [Suspect]
     Indication: CONVULSION
     Dosage: 200 MG, TID
     Route: 048
     Dates: start: 19941001, end: 20050220
  2. TEGRETOL [Suspect]
     Dosage: 900 MG/DAY
     Route: 048
     Dates: start: 20050221
  3. FOLIC ACID [Concomitant]
     Dosage: UNK, UNK

REACTIONS (6)
  - CAESAREAN SECTION [None]
  - DRUG EXPOSURE DURING PREGNANCY [None]
  - EPIDURAL ANAESTHESIA [None]
  - HYPOTENSION [None]
  - NORMAL NEWBORN [None]
  - PREGNANCY [None]
